FAERS Safety Report 6011872-1 (Version None)
Quarter: 2008Q4

REPORT INFORMATION
  Report Type: 
  Country: None (occurrence: None)
  Receive Date: 20081218
  Receipt Date: 20080925
  Transmission Date: 20090506
  Serious: No
  Sender: FDA-Public Use
  Company Number: US-ASTRAZENECA-2008UW20212

PATIENT
  Age: 66 Year
  Sex: Female
  Weight: 81.6 kg

DRUGS (7)
  1. CRESTOR [Suspect]
     Indication: BLOOD CHOLESTEROL INCREASED
     Route: 048
     Dates: start: 20080911
  2. PREVACID [Concomitant]
  3. ASACOL [Concomitant]
  4. EFFEXOR XR [Concomitant]
  5. RIMERON [Concomitant]
  6. CLONAZEPAM [Concomitant]
  7. METHOTREXATE [Concomitant]

REACTIONS (3)
  - BACK PAIN [None]
  - OESOPHAGEAL PAIN [None]
  - PAIN [None]
